FAERS Safety Report 20428624 (Version 1)
Quarter: 2022Q1

REPORT INFORMATION
  Report Type: Spontaneous
  Country: US (occurrence: US)
  Receive Date: 20220204
  Receipt Date: 20220204
  Transmission Date: 20220423
  Serious: Yes (Hospitalization, Other)
  Sender: FDA-Public Use
  Company Number: US-HORIZON THERAPEUTICS-HZN-2022-000899

PATIENT

DRUGS (1)
  1. TEPROTUMUMAB-TRBW [Suspect]
     Active Substance: TEPROTUMUMAB-TRBW
     Indication: Endocrine ophthalmopathy
     Dosage: UNK
     Route: 042

REACTIONS (2)
  - Hyperglycaemic hyperosmolar nonketotic syndrome [Recovering/Resolving]
  - Hyperglycaemia [Recovering/Resolving]
